FAERS Safety Report 5877076-8 (Version None)
Quarter: 2008Q3

REPORT INFORMATION
  Report Type: 
  Country: None (occurrence: None)
  Receive Date: 20080910
  Receipt Date: 20080904
  Transmission Date: 20090109
  Serious: Yes (Death, Hospitalization, Other)
  Sender: FDA-Public Use
  Company Number: PHHY2008JP13911

PATIENT
  Age: 66 Year
  Sex: Female

DRUGS (8)
  1. ZOMETA [Suspect]
     Indication: METASTASES TO BONE
     Dosage: 4 MG
     Route: 041
     Dates: start: 20060705, end: 20080424
  2. XELODA [Concomitant]
     Indication: BREAST CANCER
     Dosage: 2400 MG
     Route: 048
     Dates: end: 20061117
  3. ENDOXAN [Concomitant]
     Indication: BREAST CANCER
     Dosage: 100 MG
     Route: 048
     Dates: end: 20071117
  4. AROMASIN [Concomitant]
     Indication: BREAST CANCER
     Dosage: 25 MG
     Route: 048
     Dates: end: 20070622
  5. TAXOL [Concomitant]
     Indication: BREAST CANCER
     Dosage: 130 MG
     Route: 041
     Dates: start: 20070628, end: 20071227
  6. UNASYN [Concomitant]
  7. CRAVIT [Concomitant]
     Route: 048
  8. VARACILLIN [Concomitant]
     Route: 048

REACTIONS (16)
  - BLOOD ALKALINE PHOSPHATASE INCREASED [None]
  - BLOOD CREATININE INCREASED [None]
  - DENTAL FISTULA [None]
  - ERYTHEMA [None]
  - GAMMA-GLUTAMYLTRANSFERASE INCREASED [None]
  - HAEMATOCRIT DECREASED [None]
  - HAEMOGLOBIN DECREASED [None]
  - LYMPHANGIOSIS CARCINOMATOSA [None]
  - LYMPHOCYTE COUNT DECREASED [None]
  - MONOCYTE COUNT INCREASED [None]
  - OSTEOMYELITIS [None]
  - PAIN IN JAW [None]
  - PLATELET COUNT DECREASED [None]
  - PLEURAL EFFUSION [None]
  - POSTOPERATIVE WOUND INFECTION [None]
  - RED BLOOD CELL COUNT DECREASED [None]
